FAERS Safety Report 10527623 (Version 1)
Quarter: 2014Q4

REPORT INFORMATION
  Report Type: Spontaneous
  Country: US (occurrence: US)
  Receive Date: 20141020
  Receipt Date: 20141020
  Transmission Date: 20150528
  Serious: Yes (Other)
  Sender: FDA-Public Use
  Company Number: US-PFIZER INC-2014286983

PATIENT
  Age: 55 Year
  Sex: Male
  Weight: 134 kg

DRUGS (1)
  1. LYRICA [Suspect]
     Active Substance: PREGABALIN
     Indication: NEURALGIA
     Dosage: UNKNOWN

REACTIONS (2)
  - Weight increased [Unknown]
  - Limb deformity [Unknown]
